FAERS Safety Report 26034553 (Version 1)
Quarter: 2025Q4

REPORT INFORMATION
  Report Type: Spontaneous
  Country: CN (occurrence: CN)
  Receive Date: 20251112
  Receipt Date: 20251112
  Transmission Date: 20260117
  Serious: Yes (Hospitalization, Other)
  Sender: Kenvue
  Company Number: CN-KENVUE-20251103672

PATIENT

DRUGS (3)
  1. IMODIUM [Suspect]
     Active Substance: LOPERAMIDE HYDROCHLORIDE
     Indication: Diarrhoea
     Dosage: 1 DOSAGE FORM, ONCE A DAY
     Route: 048
     Dates: start: 20250917
  2. MONTMORILLONITE [Suspect]
     Active Substance: MONTMORILLONITE
     Indication: Diarrhoea
     Dosage: UNK
     Route: 065
     Dates: start: 202509
  3. MONTMORILLONITE [Suspect]
     Active Substance: MONTMORILLONITE
     Dosage: UNK
     Route: 065
     Dates: start: 2025

REACTIONS (3)
  - Intestinal obstruction [Recovering/Resolving]
  - Pyrexia [Recovering/Resolving]
  - Incorrect dose administered [Unknown]

NARRATIVE: CASE EVENT DATE: 20250917
